FAERS Safety Report 6093200-9 (Version None)
Quarter: 2009Q1

REPORT INFORMATION
  Report Type: 
  Country: None (occurrence: None)
  Receive Date: 20090226
  Receipt Date: 20080917
  Transmission Date: 20090719
  Serious: Yes (Other)
  Sender: FDA-Public Use
  Company Number: US-PFIZER INC-2009170984

PATIENT
  Age: 72 Year
  Sex: Female

DRUGS (1)
  1. NICOTINE [Suspect]

REACTIONS (7)
  - HYPERHIDROSIS [None]
  - HYPOTENSION [None]
  - INTENTIONAL DRUG MISUSE [None]
  - NAUSEA [None]
  - PALLOR [None]
  - TACHYCARDIA [None]
  - VOMITING [None]
